FAERS Safety Report 12171029 (Version 5)
Quarter: 2016Q3

REPORT INFORMATION
  Report Type: Spontaneous
  Country: US (occurrence: US)
  Receive Date: 20160311
  Receipt Date: 20160803
  Transmission Date: 20161109
  Serious: Yes (Hospitalization, Other)
  Sender: FDA-Public Use
  Company Number: US-BAYER-2016-047273

PATIENT
  Age: 79 Year
  Sex: Male

DRUGS (17)
  1. XARELTO [Suspect]
     Active Substance: RIVAROXABAN
     Indication: PRODUCT USED FOR UNKNOWN INDICATION
     Dosage: UNK
     Route: 048
     Dates: start: 20151120
  2. FLUTICASONE PROPIONATE\SALMETEROL XINAFOATE [Suspect]
     Active Substance: FLUTICASONE PROPIONATE\SALMETEROL XINAFOATE
     Indication: CHRONIC OBSTRUCTIVE PULMONARY DISEASE
     Dosage: 250/50 MICRO GRAMS 1 PUFF, TWICE DAILY (2 PUFFS DAILY),
     Route: 055
     Dates: start: 2008
  3. GARLIC. [Concomitant]
     Active Substance: GARLIC
     Dosage: UNK
     Route: 048
  4. SPIRIVA [Concomitant]
     Active Substance: TIOTROPIUM BROMIDE MONOHYDRATE
     Dosage: UNK
     Route: 065
  5. ALBUTEROL. [Concomitant]
     Active Substance: ALBUTEROL
     Dosage: UNK
     Route: 065
  6. XARELTO [Suspect]
     Active Substance: RIVAROXABAN
     Indication: PRODUCT USED FOR UNKNOWN INDICATION
     Dosage: 15 MG, BID
     Route: 048
     Dates: start: 20150901, end: 20151101
  7. HYDROCHLOROTHIAZIDE. [Concomitant]
     Active Substance: HYDROCHLOROTHIAZIDE
     Dosage: UNK
     Route: 065
  8. LOSARTAN. [Concomitant]
     Active Substance: LOSARTAN
     Dosage: UNK
     Route: 065
  9. VITAMIN D [Concomitant]
     Active Substance: CHOLECALCIFEROL
     Dosage: UNK
     Route: 065
  10. VITAMIN C W/VITAMIN D NOS/VITAMIN E [Concomitant]
     Dosage: UNK
     Route: 065
  11. MULTAQ [Concomitant]
     Active Substance: DRONEDARONE
     Indication: CARDIAC DISORDER
     Dosage: UNK
     Route: 065
  12. NIFEDIPINE. [Concomitant]
     Active Substance: NIFEDIPINE
     Indication: BLOOD PRESSURE MANAGEMENT
     Dosage: UNK
     Route: 065
     Dates: start: 20000101
  13. VENTOLIN [Concomitant]
     Active Substance: ALBUTEROL SULFATE
     Dosage: UNK
     Route: 065
  14. ACETYLSALICYLIC ACID({=100 MG) [Suspect]
     Active Substance: ASPIRIN
     Indication: PRODUCT USED FOR UNKNOWN INDICATION
     Dosage: UNK
     Route: 065
  15. COQ10 [Concomitant]
     Active Substance: UBIDECARENONE
     Dosage: UNK
     Route: 065
  16. METOPROLOL. [Concomitant]
     Active Substance: METOPROLOL
     Dosage: UNK
     Route: 065
  17. ZOCOR [Concomitant]
     Active Substance: SIMVASTATIN
     Indication: BLOOD CHOLESTEROL ABNORMAL
     Dosage: UNK
     Route: 065
     Dates: start: 20000101

REACTIONS (2)
  - Arterial occlusive disease [Recovered/Resolved]
  - Large intestinal haemorrhage [Recovered/Resolved]

NARRATIVE: CASE EVENT DATE: 20151014
